FAERS Safety Report 7468914-6 (Version None)
Quarter: 2011Q2

REPORT INFORMATION
  Report Type: 
  Country: None (occurrence: None)
  Receive Date: 20110428
  Receipt Date: 20110413
  Transmission Date: 20111010
  Serious: Yes (Other)
  Sender: FDA-Public Use
  Company Number: 028428

PATIENT

DRUGS (1)
  1. CIMZIA [Suspect]
     Indication: CROHN'S DISEASE
     Dosage: (400 MG 1X/2 WEEKS, INDUCTION PHASE: WEEK 0, 2 AND 4 SUBCUTANEOUS) ; (400 MG 1X/4 WEEKS SUBCUTANEOUS
     Route: 058
     Dates: start: 20070101

REACTIONS (2)
  - ABDOMINAL ABSCESS [None]
  - FISTULA [None]
